FAERS Safety Report 21328607 (Version 1)
Quarter: 2022Q3

REPORT INFORMATION
  Report Type: Spontaneous
  Country: BE (occurrence: BE)
  Receive Date: 20220913
  Receipt Date: 20220913
  Transmission Date: 20221027
  Serious: Yes (Other)
  Sender: FDA-Public Use
  Company Number: None

PATIENT
  Age: 46 Year
  Sex: Male
  Weight: 104 kg

DRUGS (3)
  1. ZYPREXA [Interacting]
     Active Substance: OLANZAPINE
     Indication: Product used for unknown indication
     Dosage: UNK UNK, UNKNOWN
     Route: 065
  2. PALIPERIDONE PALMITATE [Interacting]
     Active Substance: PALIPERIDONE PALMITATE
     Indication: Product used for unknown indication
     Dosage: UNK, UNKNOWN
     Route: 065
  3. ESOMEPRAZOLE MAGNESIUM [Interacting]
     Active Substance: ESOMEPRAZOLE MAGNESIUM
     Indication: Oesophagitis
     Dosage: 2 DOSAGE FORM, DAILY
     Route: 048
     Dates: start: 20220822, end: 20220829

REACTIONS (3)
  - Palpitations [Recovered/Resolved]
  - Drug interaction [Recovered/Resolved]
  - Hallucination, auditory [Recovered/Resolved]
